FAERS Safety Report 8960997 (Version 1)
Quarter: 2012Q4

REPORT INFORMATION
  Report Type: 
  Country: DE (occurrence: DE)
  Receive Date: 20121212
  Receipt Date: 20121212
  Transmission Date: 20130627
  Serious: Yes (Other)
  Sender: FDA-Public Use
  Company Number: DE-PFIZER INC-2012270542

PATIENT
  Age: 58 Year
  Sex: Female
  Weight: 86 kg

DRUGS (7)
  1. VENLAFAXINE HYDROCHLORIDE [Suspect]
     Indication: DEPRESSION
     Dosage: 37.5 mg, daily
     Dates: start: 201101, end: 20121026
  2. VENLAFAXINE HYDROCHLORIDE [Suspect]
     Dosage: 75 mg, daily
     Dates: start: 20121031
  3. VENLAFAXINE HYDROCHLORIDE [Suspect]
     Indication: DEPRESSION
     Dosage: 75 mg, daily
     Dates: start: 201101, end: 20121026
  4. VENLAFAXINE HYDROCHLORIDE [Suspect]
     Dosage: 75 mg, daily
     Dates: start: 20121031
  5. L-THYROXIN [Concomitant]
     Indication: THYROID THERAPY
     Dosage: 125 ug, daily
     Dates: start: 200711, end: 20121026
  6. L-THYROXIN [Concomitant]
     Dosage: 100 ug, 1x/day
     Dates: start: 20121102
  7. BISOPROLOL [Concomitant]
     Indication: VENTRICULAR BIGEMINY
     Dosage: 2.5 - 5 mg, daily
     Dates: start: 20121020, end: 20121030

REACTIONS (2)
  - Ventricular extrasystoles [Recovered/Resolved]
  - Peripheral vascular disorder [Recovered/Resolved]
